FAERS Safety Report 4521234-1 (Version None)
Quarter: 2004Q4

REPORT INFORMATION
  Report Type: 
  Country: None (occurrence: None)
  Receive Date: 20041208
  Receipt Date: 20041129
  Transmission Date: 20050328
  Serious: Yes (Other)
  Sender: FDA-Public Use
  Company Number: GB-NOVOPROD-240819

PATIENT
  Age: 52 Year
  Sex: Female
  Weight: 72 kg

DRUGS (6)
  1. NOVORAPID [Suspect]
     Indication: ILL-DEFINED DISORDER
     Dosage: 8 IU, QD
     Route: 058
     Dates: start: 20041016, end: 20041112
  2. LEVEMIR FLEXPEN [Concomitant]
     Dosage: 14 IU, QD
     Route: 058
     Dates: start: 20041016, end: 20041112
  3. ENALAPRIL [Concomitant]
     Dosage: 10 MG, BID
     Route: 048
     Dates: start: 19980101
  4. ASPIRIN [Concomitant]
     Dosage: 75 MG, QD
     Route: 048
  5. ATORVASTATIN [Concomitant]
     Dosage: 10 MG, QD
     Route: 048
     Dates: start: 20010101
  6. AMITRIPTYLINE HCL [Concomitant]
     Dosage: 25 MG, QD
     Route: 048
     Dates: start: 19920101

REACTIONS (9)
  - ABDOMINAL DISTENSION [None]
  - ARTHRALGIA [None]
  - CONDITION AGGRAVATED [None]
  - FLUID RETENTION [None]
  - HYPERHIDROSIS [None]
  - JOINT SWELLING [None]
  - OEDEMA PERIPHERAL [None]
  - SWELLING FACE [None]
  - URINE OUTPUT DECREASED [None]
